FAERS Safety Report 7225677-7 (Version None)
Quarter: 2011Q1

REPORT INFORMATION
  Report Type: 
  Country: None (occurrence: None)
  Receive Date: 20110113
  Receipt Date: 20101207
  Transmission Date: 20110831
  Serious: No
  Sender: FDA-Public Use
  Company Number: US-NOVEN-10US001423

PATIENT
  Sex: Male
  Weight: 102.4 kg

DRUGS (4)
  1. FENTANYL-100 [Suspect]
     Indication: PAIN
     Dosage: 50 UG/HR, Q3DAYS
     Route: 062
     Dates: start: 20101101
  2. OXYCODONE [Concomitant]
     Indication: BREAKTHROUGH PAIN
     Dosage: UNK
     Route: 048
  3. MUSCLE RELAXER [Concomitant]
     Dosage: UNK
     Route: 048
  4. AMITRIPTYLINE [Concomitant]
     Dosage: UNK
     Route: 048

REACTIONS (4)
  - HYPERHIDROSIS [None]
  - PRODUCT QUALITY ISSUE [None]
  - INADEQUATE ANALGESIA [None]
  - DRUG ADMINISTRATION ERROR [None]
